FAERS Safety Report 6609260-X (Version None)
Quarter: 2010Q1

REPORT INFORMATION
  Report Type: 
  Country: None (occurrence: None)
  Receive Date: 20100223
  Receipt Date: 20100216
  Transmission Date: 20100710
  Serious: Yes (Death, Hospitalization)
  Sender: FDA-Public Use
  Company Number: 1000011878

PATIENT
  Age: 61 Year
  Sex: Male

DRUGS (5)
  1. LEXAPRO [Suspect]
     Indication: DEPRESSION
     Dosage: 10 MG (10 MG,1 IN 1 D),ORAL
     Route: 048
     Dates: start: 20091007, end: 20091011
  2. LEXAPRO [Suspect]
     Indication: DEPRESSION
     Dosage: 10 MG (10 MG,1 IN 1 D),ORAL
     Route: 048
     Dates: start: 20091012, end: 20100127
  3. ZYPREXA [Suspect]
     Indication: DEPRESSION
     Dosage: 10 MG (10 MG,1 IN 1 D), ORAL
     Route: 048
     Dates: start: 20091022, end: 20100127
  4. FANAPT [Suspect]
     Indication: DEPRESSION
     Dosage: 2 MG (1 MG,2 IN 1 D),ORAL
     Route: 048
     Dates: start: 20100125, end: 20100127
  5. SONATA [Concomitant]

REACTIONS (6)
  - BRAIN DEATH [None]
  - COMA [None]
  - HERPES ZOSTER [None]
  - RESPIRATORY ARREST [None]
  - TACHYCARDIA [None]
  - WEIGHT INCREASED [None]
